FAERS Safety Report 8107491-3 (Version None)
Quarter: 2012Q1

REPORT INFORMATION
  Report Type: 
  Country: None (occurrence: None)
  Receive Date: 20120202
  Receipt Date: 20120125
  Transmission Date: 20120608
  Serious: Yes (Hospitalization)
  Sender: FDA-Public Use
  Company Number: CZ-TEVA-319969ISR

PATIENT
  Sex: Male
  Weight: 82 kg

DRUGS (1)
  1. WARFARIN SODIUM [Suspect]
     Indication: PULMONARY EMBOLISM
     Dosage: PRN
     Route: 048
     Dates: start: 20071116, end: 20071128

REACTIONS (2)
  - HAEMOTHORAX [None]
  - PULMONARY INFARCTION [None]
